FAERS Safety Report 11980040 (Version 1)
Quarter: 2016Q1

REPORT INFORMATION
  Report Type: Report from Study
  Country: US (occurrence: US)
  Receive Date: 20160129
  Receipt Date: 20160129
  Transmission Date: 20160526
  Serious: No
  Sender: FDA-Public Use
  Company Number: US-ABBVIE-15K-163-1409227-00

PATIENT
  Age: 37 Year
  Sex: Female
  Weight: 77.18 kg

DRUGS (2)
  1. PROAIR HFA [Concomitant]
     Active Substance: ALBUTEROL SULFATE
     Indication: PRODUCT USED FOR UNKNOWN INDICATION
  2. HUMIRA [Suspect]
     Active Substance: ADALIMUMAB
     Indication: PSORIASIS
     Route: 058
     Dates: start: 2009, end: 201501

REACTIONS (6)
  - Pain in extremity [Recovered/Resolved]
  - Tonsillar hypertrophy [Recovered/Resolved]
  - Influenza [Recovered/Resolved]
  - Dysphagia [Recovered/Resolved]
  - Pharyngitis streptococcal [Recovered/Resolved]
  - Injection site pain [Not Recovered/Not Resolved]

NARRATIVE: CASE EVENT DATE: 2009
